FAERS Safety Report 10511273 (Version 1)
Quarter: 2014Q3

REPORT INFORMATION
  Report Type: Spontaneous
  Country: US (occurrence: None)
  Receive Date: 20140924
  Receipt Date: 20140924
  Transmission Date: 20150326
  Serious: Yes (Other)
  Sender: FDA-Public Use
  Company Number: 2013STPI000499

PATIENT
  Age: 39 Year
  Sex: Male
  Weight: 77.1 kg

DRUGS (3)
  1. LEXAPRO [Concomitant]
     Active Substance: ESCITALOPRAM OXALATE
  2. KEPPRA [Concomitant]
     Active Substance: LEVETIRACETAM
  3. MATULANE [Suspect]
     Active Substance: PROCARBAZINE HYDROCHLORIDE
     Indication: PRODUCT USED FOR UNKNOWN INDICATION
     Route: 048
     Dates: start: 201311

REACTIONS (1)
  - Convulsion [None]

NARRATIVE: CASE EVENT DATE: 201311
